FAERS Safety Report 7544529-6 (Version None)
Quarter: 2011Q2

REPORT INFORMATION
  Report Type: 
  Country: None (occurrence: None)
  Receive Date: 20110613
  Receipt Date: 20110603
  Transmission Date: 20111010
  Serious: Yes (Death, Hospitalization, Other)
  Sender: FDA-Public Use
  Company Number: US-GILEAD-2011-0039934

PATIENT
  Sex: Male
  Weight: 71 kg

DRUGS (3)
  1. ATRIPLA [Suspect]
     Indication: HIV INFECTION
     Dates: start: 20110511
  2. EFAVIRENZ [Concomitant]
     Dates: end: 20110525
  3. ISENTRESS [Concomitant]
     Dates: start: 20110526

REACTIONS (2)
  - PYREXIA [None]
  - BLOOD BILIRUBIN INCREASED [None]
